FAERS Safety Report 8904385 (Version 2)
Quarter: 2013Q1

REPORT INFORMATION
  Report Type: Report from Study
  Country: JP (occurrence: JP)
  Receive Date: 20121112
  Receipt Date: 20130118
  Transmission Date: 20140127
  Serious: Yes (Death, Hospitalization)
  Sender: FDA-Public Use
  Company Number: JP-MERCK-1211JPN004433

PATIENT
  Age: 86 Year
  Sex: Male

DRUGS (23)
  1. GLACTIV [Suspect]
     Indication: TYPE 2 DIABETES MELLITUS
     Dosage: 50 MG, QD
     Route: 048
     Dates: start: 20110913, end: 20111230
  2. GLACTIV [Suspect]
     Dosage: 50 MG, QD
     Route: 048
     Dates: start: 20120102, end: 20120824
  3. AMARYL [Suspect]
     Indication: TYPE 2 DIABETES MELLITUS
     Dosage: 0.5 MG, QD
     Route: 048
     Dates: start: 20111031, end: 20111121
  4. AMARYL [Suspect]
     Dosage: 0.5 MG, QD
     Route: 048
     Dates: start: 20120102, end: 20120110
  5. AMARYL [Suspect]
     Dosage: 1 MG, QD
     Route: 048
     Dates: start: 20111122, end: 20111230
  6. AMARYL [Suspect]
     Dosage: 1 MG, QD
     Route: 048
     Dates: start: 20120111, end: 20120122
  7. MEDET [Concomitant]
     Dosage: UNK
     Dates: end: 20120722
  8. OMEPRAL [Concomitant]
     Dosage: UNK
     Dates: end: 20120824
  9. BLOPRESS [Concomitant]
     Dosage: UNK
     Dates: end: 20120824
  10. MADOPAR [Concomitant]
     Dosage: UNK
     Dates: end: 20120824
  11. RILYFTER [Concomitant]
     Dosage: UNK
     Dates: end: 20120824
  12. MAGMITT [Concomitant]
     Dosage: UNK
     Dates: end: 20120824
  13. LENDORMIN [Concomitant]
     Dosage: UNK
     Dates: end: 20120824
  14. MEMARY [Concomitant]
     Dosage: UNK
     Dates: start: 20111108, end: 20120824
  15. ROCEPHIN [Concomitant]
     Dosage: UNK
     Dates: start: 20111021, end: 20111026
  16. CEFAMEZIN ALFA [Concomitant]
     Dosage: UNK
     Dates: start: 20111027, end: 20111103
  17. LACTEC G [Concomitant]
     Dosage: UNK
     Dates: start: 20111021, end: 20111103
  18. LACTEC G [Concomitant]
     Dosage: UNK
     Dates: start: 20111230, end: 20111231
  19. HUMALOG [Concomitant]
     Dosage: UNK
     Dates: start: 20111025, end: 20111031
  20. LANTUS [Concomitant]
     Dosage: UNK
     Dates: start: 20111025, end: 20111031
  21. RISPERDAL [Concomitant]
     Dosage: UNK
     Dates: start: 20111024, end: 20111031
  22. NOVORAPID [Concomitant]
     Dosage: UNK
     Dates: start: 20111230, end: 20111230
  23. GLUCAGON [Concomitant]
     Dosage: UNK
     Dates: start: 20111230, end: 20111230

REACTIONS (5)
  - Autoimmune haemolytic anaemia [Fatal]
  - Delirium [Recovered/Resolved]
  - Hypoglycaemia [Recovered/Resolved]
  - Postrenal failure [Recovered/Resolved]
  - Pyelonephritis [Recovered/Resolved]
